FAERS Safety Report 7082549-9 (Version None)
Quarter: 2010Q3

REPORT INFORMATION
  Report Type: 
  Country: None (occurrence: None)
  Receive Date: 20100929
  Receipt Date: 20100624
  Transmission Date: 20110219
  Serious: No
  Sender: FDA-Public Use
  Company Number: US-WYE-H16178610

PATIENT
  Age: 52 Year
  Sex: Female
  Weight: 55.84 kg

DRUGS (4)
  1. PRISTIQ [Suspect]
     Indication: DEPRESSION
     Dosage: TOOK AN EXTRA DOSE BY MISTAKE
     Dates: start: 20100624, end: 20100624
  2. SEROQUEL [Concomitant]
  3. CITRACAL (CALCIUM CITRATE) [Concomitant]
  4. FOSAMAX [Concomitant]

REACTIONS (2)
  - FEELING ABNORMAL [None]
  - INCORRECT DOSE ADMINISTERED [None]
